FAERS Safety Report 9289921 (Version 3)
Quarter: 2014Q1

REPORT INFORMATION
  Report Type: Spontaneous
  Country: US (occurrence: US)
  Receive Date: 20130515
  Receipt Date: 20140128
  Transmission Date: 20141002
  Serious: Yes (Other)
  Sender: FDA-Public Use
  Company Number: US-BAYER-2013-059622

PATIENT
  Sex: Female

DRUGS (13)
  1. YAZ [Suspect]
     Indication: DYSMENORRHOEA
  2. YASMIN [Suspect]
  3. OCELLA [Suspect]
  4. TRAMADOL HYDROCHLORIDE [Concomitant]
     Dosage: 50 MG, TID
     Route: 048
  5. OMEPRAZOLE [Concomitant]
     Dosage: 20 MG, UNK
  6. REGLAN [Concomitant]
     Dosage: 10 MG, QID
     Route: 048
  7. VICODIN [Concomitant]
     Dosage: 5/500, 3-4 XD PRN
     Route: 048
  8. MOBIC [Concomitant]
     Dosage: 15 MG DAILY
     Route: 048
  9. PHENTERMINE HYDROCHLORIDE [Concomitant]
     Dosage: 37.5 MG DAILY
     Route: 048
  10. TYLENOL [PARACETAMOL] [Concomitant]
     Dosage: 650 MG Q4
     Route: 048
  11. NUBAIN [Concomitant]
     Dosage: 10 MG, ONCE
     Route: 030
     Dates: start: 20090503
  12. DEPO PROVERA [Concomitant]
  13. GARDASIL [Concomitant]

REACTIONS (5)
  - Cholecystitis [None]
  - Gallbladder injury [None]
  - Pain [None]
  - Injury [None]
  - Pain [None]
